FAERS Safety Report 10215236 (Version 1)
Quarter: 2014Q2

REPORT INFORMATION
  Report Type: Report from Study
  Country: BR (occurrence: BR)
  Receive Date: 20140603
  Receipt Date: 20140603
  Transmission Date: 20141212
  Serious: Yes (Other)
  Sender: FDA-Public Use
  Company Number: PHHY2014BR066194

PATIENT
  Sex: Female
  Weight: 65 kg

DRUGS (2)
  1. FORASEQ [Suspect]
     Indication: ASTHMA
     Dosage: UNK, BID (3 YEARS AGO TWICE DAILY)
     Route: 055
  2. FORASEQ [Suspect]
     Dosage: UNK UKN, UNK
     Dates: start: 20140528

REACTIONS (4)
  - Bronchial obstruction [Recovering/Resolving]
  - Asthma [Recovering/Resolving]
  - Dyspnoea [Unknown]
  - Expired product administered [Unknown]
